FAERS Safety Report 23486887 (Version 1)
Quarter: 2024Q1

REPORT INFORMATION
  Report Type: Spontaneous
  Country: CN (occurrence: CN)
  Receive Date: 20240206
  Receipt Date: 20240206
  Transmission Date: 20240410
  Serious: Yes (Other)
  Sender: FDA-Public Use
  Company Number: CN-BAYER-2024A019657

PATIENT
  Age: 73 Year
  Sex: Male
  Weight: 62.3 kg

DRUGS (2)
  1. ULTRAVIST [Suspect]
     Active Substance: IOPROMIDE
     Indication: Angiocardiogram
     Dosage: 80 ML, ONCE
     Route: 042
     Dates: start: 20240108, end: 20240108
  2. ULTRAVIST [Suspect]
     Active Substance: IOPROMIDE
     Indication: Percutaneous coronary intervention

REACTIONS (4)
  - Delirium [Recovering/Resolving]
  - Loss of consciousness [Recovered/Resolved]
  - Unresponsive to stimuli [Recovered/Resolved]
  - Aphasia [Recovering/Resolving]

NARRATIVE: CASE EVENT DATE: 20240108
